FAERS Safety Report 9461732 (Version 2)
Quarter: 2013Q4

REPORT INFORMATION
  Report Type: Spontaneous
  Country: JP (occurrence: JP)
  Receive Date: 20130816
  Receipt Date: 20131002
  Transmission Date: 20140711
  Serious: Yes (Other)
  Sender: FDA-Public Use
  Company Number: JP-ASTELLAS-2013JP008488

PATIENT
  Sex: Female

DRUGS (2)
  1. PROGRAF [Suspect]
     Route: 048
  2. PROGESTERONE [Interacting]
     Indication: HORMONE THERAPY
     Route: 065

REACTIONS (3)
  - Drug interaction [Unknown]
  - Glycosylated haemoglobin increased [Recovered/Resolved]
  - Drug level increased [Unknown]
